FAERS Safety Report 7028124-3 (Version None)
Quarter: 2010Q4

REPORT INFORMATION
  Report Type: 
  Country: None (occurrence: None)
  Receive Date: 20101005
  Receipt Date: 20101005
  Transmission Date: 20110411
  Serious: Yes (Hospitalization, Disabling)
  Sender: FDA-Public Use
  Company Number: JP-ACTELION-A-CH2010-38762

PATIENT
  Sex: Male
  Weight: 52 kg

DRUGS (16)
  1. BOSENTAN TABLET 62.5 MG JPN [Suspect]
     Indication: PULMONARY ARTERIAL HYPERTENSION
     Dosage: 62.5 MG, BID
     Route: 048
     Dates: start: 20081118, end: 20090112
  2. BOSENTAN TABLET 62.5 MG JPN [Suspect]
     Dosage: 31.25 MG, BID
     Route: 048
     Dates: start: 20081111, end: 20081117
  3. BERAPROST SODIUM [Concomitant]
  4. WARFARIN POTASSIUM [Concomitant]
  5. LOSARTAN POTASSIUM [Concomitant]
  6. METILDIGOXIN [Concomitant]
  7. GLICLAZIDE [Concomitant]
  8. PIMOBENDAN [Concomitant]
  9. MAGNESIUM OXIDE [Concomitant]
  10. REBAMIPIDE [Concomitant]
  11. ACARBOSE [Concomitant]
  12. DIMETICONE [Concomitant]
  13. FUROSEMIDE [Concomitant]
  14. SPIRONOLACTONE [Concomitant]
  15. TRICHLORMETHIAZIDE [Concomitant]
  16. OXYGEN [Concomitant]

REACTIONS (5)
  - BRAIN STEM INFARCTION [None]
  - CHEST PAIN [None]
  - CORONARY ARTERY DISEASE [None]
  - DEPRESSED LEVEL OF CONSCIOUSNESS [None]
  - MECHANICAL VENTILATION [None]
